FAERS Safety Report 18535753 (Version 23)
Quarter: 2025Q1

REPORT INFORMATION
  Report Type: Spontaneous
  Country: US (occurrence: US)
  Receive Date: 20201123
  Receipt Date: 20250218
  Transmission Date: 20250408
  Serious: Yes (Other)
  Sender: PFIZER
  Company Number: US-PFIZER INC-2020460067

PATIENT
  Age: 70 Year
  Sex: Male

DRUGS (8)
  1. XELJANZ [Suspect]
     Active Substance: TOFACITINIB CITRATE
     Indication: Rheumatoid arthritis
     Dates: start: 2018
  2. XELJANZ [Suspect]
     Active Substance: TOFACITINIB CITRATE
     Dosage: 5 MG, 2X/DAY
  3. ASPIRIN [Concomitant]
     Active Substance: ASPIRIN
  4. FENOFIBRATE [Concomitant]
     Active Substance: FENOFIBRATE
  5. FOLIC ACID [Concomitant]
     Active Substance: FOLIC ACID
  6. LISINOPRIL [Concomitant]
     Active Substance: LISINOPRIL
     Indication: Hypertension
     Dosage: 5 MG, DAILY
  7. METHOTREXATE [Concomitant]
     Active Substance: METHOTREXATE
  8. PLAVIX [Concomitant]
     Active Substance: CLOPIDOGREL BISULFATE

REACTIONS (10)
  - Myocardial infarction [Unknown]
  - Intentional product misuse [Unknown]
  - Agitation [Unknown]
  - Feeling abnormal [Unknown]
  - Arthritis [Unknown]
  - Dysphonia [Unknown]
  - Bradyphrenia [Unknown]
  - Dysstasia [Unknown]
  - Asthenia [Unknown]
  - Eye disorder [Unknown]
